FAERS Safety Report 5136912-3 (Version None)
Quarter: 2006Q4

REPORT INFORMATION
  Report Type: 
  Country: None (occurrence: None)
  Receive Date: 20061023
  Receipt Date: 20061011
  Transmission Date: 20070319
  Serious: Yes (Hospitalization, Other)
  Sender: FDA-Public Use
  Company Number: 2006112052

PATIENT
  Age: 40 Year
  Sex: Female
  Weight: 43.4 kg

DRUGS (4)
  1. HALCION [Suspect]
     Dosage: 0.125 MG (0.125 MG, 1 IN 1 D), ORAL
     Route: 048
     Dates: start: 20060927, end: 20060901
  2. DEPAS (ETIZOLAM) [Suspect]
     Dosage: 1.5 MG (0.5 MG, 3 IN 1 D), ORAL
     Route: 048
     Dates: start: 20060702, end: 20060904
  3. LOXONIN (LOXOPROFEN SODIUM) [Concomitant]
  4. MYONAL     (EPERISONE HYDROCHLORIDE) [Concomitant]

REACTIONS (21)
  - ABNORMAL BEHAVIOUR [None]
  - ANAEMIA [None]
  - ANEURYSM RUPTURED [None]
  - COGNITIVE DISORDER [None]
  - DISSOCIATIVE DISORDER [None]
  - DRUG EFFECT PROLONGED [None]
  - DYSCALCULIA [None]
  - ELECTROENCEPHALOGRAM ABNORMAL [None]
  - FAMILY STRESS [None]
  - INTENTIONAL OVERDOSE [None]
  - KIDNEY INFECTION [None]
  - LOSS OF CONSCIOUSNESS [None]
  - MENTAL DISORDER DUE TO A GENERAL MEDICAL CONDITION [None]
  - NERVOUS SYSTEM DISORDER [None]
  - RENAL FAILURE [None]
  - RETROGRADE AMNESIA [None]
  - STRESS AT WORK [None]
  - STUPOR [None]
  - SUBARACHNOID HAEMORRHAGE [None]
  - SUICIDE ATTEMPT [None]
  - WHITE BLOOD CELL COUNT INCREASED [None]
